FAERS Safety Report 17571423 (Version 1)
Quarter: 2020Q1

REPORT INFORMATION
  Report Type: Spontaneous
  Country: None (occurrence: US)
  Receive Date: 20200323
  Receipt Date: 20200323
  Transmission Date: 20200409
  Serious: Yes (Life-Threatening, Hospitalization, Other)
  Sender: FDA-Public Use
  Company Number: US-MLMSERVICE-20200212-2164711-1

PATIENT
  Age: 31 Year
  Sex: Female

DRUGS (4)
  1. RIFAMPIN. [Suspect]
     Active Substance: RIFAMPIN
  2. PYRAZINAMIDE. [Suspect]
     Active Substance: PYRAZINAMIDE
  3. MOXIFLOXACIN. [Suspect]
     Active Substance: MOXIFLOXACIN
     Indication: TUBERCULOSIS OF EYE
  4. ISONIAZID. [Suspect]
     Active Substance: ISONIAZID

REACTIONS (5)
  - Hepatic necrosis [Recovering/Resolving]
  - Hepatotoxicity [Recovering/Resolving]
  - Hepatic fibrosis [Recovering/Resolving]
  - Autoimmune disorder [Unknown]
  - Drug-induced liver injury [Recovering/Resolving]
